FAERS Safety Report 9013792 (Version 1)
Quarter: 2012Q4

REPORT INFORMATION
  Report Type: Spontaneous
  Country: DE (occurrence: None)
  Receive Date: 20121231
  Receipt Date: 20121231
  Transmission Date: 20130627
  Serious: Yes (Other)
  Sender: FDA-Public Use
  Company Number: VAL_01208_2012

PATIENT
  Sex: Male
  Weight: 2.4 kg

DRUGS (1)
  1. METOPROLOL TARTRATE [Suspect]
     Indication: PRODUCT USED FOR UNKNOWN INDICATION
     Dosage: [maternal dose]
     Route: 064

REACTIONS (8)
  - Maternal drugs affecting foetus [None]
  - Small for dates baby [None]
  - Caesarean section [None]
  - Foetal heart rate deceleration [None]
  - Meconium in amniotic fluid [None]
  - Hypoglycaemia neonatal [None]
  - Hyperinsulinaemia [None]
  - Neonatal respiratory distress syndrome [None]
